FAERS Safety Report 7134728-X (Version None)
Quarter: 2010Q4

REPORT INFORMATION
  Report Type: 
  Country: None (occurrence: None)
  Receive Date: 20101203
  Receipt Date: 20101125
  Transmission Date: 20110411
  Serious: Yes (Death, Hospitalization)
  Sender: FDA-Public Use
  Company Number: DE-ROCHE-729607

PATIENT
  Sex: Male
  Weight: 85 kg

DRUGS (2)
  1. ROACTEMRA [Suspect]
     Indication: RHEUMATOID ARTHRITIS
     Dosage: SINGLE DOSE
     Route: 042
     Dates: start: 20100819
  2. PREDNISOLONE [Concomitant]
     Indication: RHEUMATOID ARTHRITIS
     Dates: start: 20080401

REACTIONS (8)
  - BASILAR ARTERY THROMBOSIS [None]
  - BRAIN STEM INFARCTION [None]
  - CEREBELLAR INFARCTION [None]
  - LOSS OF CONSCIOUSNESS [None]
  - NEUTROPHIL COUNT DECREASED [None]
  - PNEUMONIA [None]
  - SUBARACHNOID HAEMORRHAGE [None]
  - VERTEBRAL ARTERY THROMBOSIS [None]
